FAERS Safety Report 10031600 (Version 2)
Quarter: 2014Q2

REPORT INFORMATION
  Report Type: Spontaneous
  Country: US (occurrence: US)
  Receive Date: 20140324
  Receipt Date: 20140429
  Transmission Date: 20141212
  Serious: No
  Sender: FDA-Public Use
  Company Number: US-PFIZER INC-2014079638

PATIENT
  Age: 55 Year
  Sex: Male

DRUGS (2)
  1. INLYTA [Suspect]
     Indication: RENAL CANCER
     Dosage: 10 MG, 2X/DAY
     Dates: start: 20140220
  2. SUTENT [Suspect]
     Indication: RENAL CANCER
     Dosage: 10 MG, 2X/DAY
     Route: 048
     Dates: start: 20140220

REACTIONS (2)
  - Pruritus generalised [Unknown]
  - Nausea [Unknown]
